FAERS Safety Report 22243674 (Version 2)
Quarter: 2023Q2

REPORT INFORMATION
  Report Type: Other
  Country: CA (occurrence: CA)
  Receive Date: 20230424
  Receipt Date: 20230517
  Transmission Date: 20230721
  Serious: Yes (Hospitalization, Other)
  Sender: FDA-Public Use
  Company Number: CA-CELLTRION INC.-2023CA005247

PATIENT

DRUGS (10)
  1. RITUXIMAB [Suspect]
     Active Substance: RITUXIMAB
     Indication: Vasculitis
     Dosage: UNK
     Route: 065
  2. RITUXIMAB [Suspect]
     Active Substance: RITUXIMAB
     Indication: Granulomatosis with polyangiitis
     Dosage: 500 MILLIGRAM
     Route: 041
  3. ASPIRIN [Concomitant]
     Active Substance: ASPIRIN
  4. GARLIC [Concomitant]
     Active Substance: GARLIC
  5. ALLOPURINOL [Concomitant]
     Active Substance: ALLOPURINOL
  6. BRILINTA [Concomitant]
     Active Substance: TICAGRELOR
  7. METOPROLOL [Concomitant]
     Active Substance: METOPROLOL
  8. PANTOPRAZOLE [Concomitant]
     Active Substance: PANTOPRAZOLE
  9. RAMIPRIL [Concomitant]
     Active Substance: RAMIPRIL
  10. ROSUVASTATIN [Concomitant]
     Active Substance: ROSUVASTATIN
     Route: 058

REACTIONS (7)
  - Granulomatosis with polyangiitis [Unknown]
  - Hypoacusis [Unknown]
  - C-reactive protein increased [Unknown]
  - Myocardial infarction [Unknown]
  - Arthralgia [Unknown]
  - Back pain [Unknown]
  - Speech disorder [Unknown]
